FAERS Safety Report 5083263-1 (Version None)
Quarter: 2006Q3

REPORT INFORMATION
  Report Type: 
  Country: None (occurrence: None)
  Receive Date: 20060816
  Receipt Date: 20060816
  Transmission Date: 20061208
  Serious: Yes (Life-Threatening, Hospitalization, Other)
  Sender: FDA-Public Use
  Company Number: None

PATIENT
  Age: 47 Year
  Sex: Male
  Weight: 108.9 kg

DRUGS (9)
  1. CHLOROTHIAZIDE [Suspect]
     Indication: CARDIAC FAILURE CONGESTIVE
     Dosage: 250MG  ONCE IV BOLUS
     Route: 040
     Dates: start: 20051128, end: 20051128
  2. CHLOROTHIAZIDE [Suspect]
     Indication: OEDEMA
     Dosage: 250MG  ONCE IV BOLUS
     Route: 040
     Dates: start: 20051128, end: 20051128
  3. DIGOXIN [Concomitant]
  4. COLCHICINE [Concomitant]
  5. FUROSEMIDE [Concomitant]
  6. ISOSORBIDE DINITRATE [Concomitant]
  7. HYDRALAZINE HCL [Concomitant]
  8. METOLAZONE [Concomitant]
  9. METHYLPREDNISOLONE [Concomitant]

REACTIONS (3)
  - DYSPNOEA [None]
  - PRURITUS [None]
  - RASH [None]
